FAERS Safety Report 8620993-6 (Version None)
Quarter: 2012Q3

REPORT INFORMATION
  Report Type: 
  Country: None (occurrence: None)
  Receive Date: 20120824
  Receipt Date: 20120816
  Transmission Date: 20120928
  Serious: Yes (Other)
  Sender: FDA-Public Use
  Company Number: TR-ABBOTT-12P-161-0970056-00

PATIENT
  Age: 4 Year
  Sex: Male

DRUGS (2)
  1. VALPROATE SODIUM [Suspect]
     Indication: CONVULSION
     Dosage: 150 MG DAILY
  2. CARBAMAZEPINE [Concomitant]
     Indication: PRODUCT USED FOR UNKNOWN INDICATION

REACTIONS (11)
  - HYPERSEXUALITY [None]
  - OBSESSIVE-COMPULSIVE DISORDER [None]
  - ABNORMAL BEHAVIOUR [None]
  - HYPERPHAGIA [None]
  - FRONTOTEMPORAL DEMENTIA [None]
  - DISTURBANCE IN ATTENTION [None]
  - IRRITABILITY [None]
  - KLUVER-BUCY SYNDROME [None]
  - LOGORRHOEA [None]
  - PSYCHOMOTOR HYPERACTIVITY [None]
  - AGGRESSION [None]
